FAERS Safety Report 16349425 (Version 3)
Quarter: 2020Q3

REPORT INFORMATION
  Report Type: Report from Study
  Country: US (occurrence: US)
  Receive Date: 20190523
  Receipt Date: 20200730
  Transmission Date: 20201102
  Serious: Yes (Hospitalization, Other)
  Sender: FDA-Public Use
  Company Number: US-ACTELION-A-US2015-111255

PATIENT
  Age: 78 Year
  Sex: Female
  Weight: 88.44 kg

DRUGS (3)
  1. TRACLEER [Suspect]
     Active Substance: BOSENTAN
     Indication: PULMONARY HYPERTENSION
     Dosage: 125 MG, BID
     Route: 048
     Dates: start: 20070522
  2. TRACLEER [Suspect]
     Active Substance: BOSENTAN
     Dosage: 125 MG, BID
     Route: 048
  3. POTASSIUM [Concomitant]
     Active Substance: POTASSIUM

REACTIONS (19)
  - Choking [Recovered/Resolved]
  - Dyspepsia [Unknown]
  - Nasopharyngitis [Unknown]
  - Arthritis [Unknown]
  - Fatigue [Unknown]
  - Dyspnoea [Unknown]
  - Back pain [Unknown]
  - Hiatus hernia [Unknown]
  - Neoplasm malignant [Unknown]
  - Chest pain [Unknown]
  - Dysphagia [Unknown]
  - Dyspnoea exertional [Unknown]
  - Cough [Unknown]
  - Nausea [Unknown]
  - Malaise [Unknown]
  - Blood test [Unknown]
  - Tooth disorder [Unknown]
  - Ulcer haemorrhage [Recovered/Resolved]
  - Non-cardiac chest pain [Unknown]

NARRATIVE: CASE EVENT DATE: 2017
